FAERS Safety Report 4522365-2 (Version None)
Quarter: 2004Q4

REPORT INFORMATION
  Report Type: 
  Country: None (occurrence: None)
  Receive Date: 20041209
  Receipt Date: 20041129
  Transmission Date: 20050328
  Serious: Yes (Hospitalization)
  Sender: FDA-Public Use
  Company Number: FR-GLAXOSMITHKLINE-B0358386A

PATIENT
  Sex: Male
  Weight: 2.7 kg

DRUGS (7)
  1. DEROXAT [Suspect]
     Indication: DEPRESSION
     Dosage: 20MG PER DAY
     Dates: start: 20040101, end: 20040829
  2. LEXOMIL [Suspect]
     Indication: SLEEP DISORDER
     Dosage: 2UNIT PER DAY
     Dates: start: 20040101, end: 20040829
  3. NORSET [Concomitant]
     Dates: end: 20040101
  4. HAVLANE [Concomitant]
  5. CLAMOXYL [Concomitant]
     Indication: BETA HAEMOLYTIC STREPTOCOCCAL INFECTION
     Dosage: 2UNIT PER DAY
     Dates: start: 20040829, end: 20040829
  6. CANNABIS [Concomitant]
  7. TOBACCO [Concomitant]

REACTIONS (9)
  - DRUG EXPOSURE DURING PREGNANCY [None]
  - DYSKINESIA [None]
  - FOETAL GROWTH RETARDATION [None]
  - HYPERVENTILATION [None]
  - HYPOXIA [None]
  - NEONATAL DISORDER [None]
  - NEONATAL RESPIRATORY DISTRESS SYNDROME [None]
  - PREGNANCY [None]
  - TREMOR [None]
